FAERS Safety Report 18180515 (Version 1)
Quarter: 2020Q3

REPORT INFORMATION
  Report Type: Spontaneous
  Country: US (occurrence: US)
  Receive Date: 20200820
  Receipt Date: 20200820
  Transmission Date: 20201103
  Serious: Yes (Hospitalization, Other)
  Sender: FDA-Public Use
  Company Number: None

PATIENT
  Age: 27 Year
  Sex: Female

DRUGS (1)
  1. REMDESIVIR. [Suspect]
     Active Substance: REMDESIVIR
     Indication: COVID-19
     Dosage: ?          OTHER ROUTE:IV?
     Route: 042
     Dates: start: 20200609, end: 20200612

REACTIONS (6)
  - Liver function test increased [None]
  - Exposure during pregnancy [None]
  - Cholelithiasis [None]
  - Hepatic lesion [None]
  - Transaminases increased [None]
  - Haemangioma of liver [None]

NARRATIVE: CASE EVENT DATE: 20200612
